FAERS Safety Report 9206519 (Version 2)
Quarter: 2013Q4

REPORT INFORMATION
  Report Type: Spontaneous
  Country: US (occurrence: US)
  Receive Date: 20130403
  Receipt Date: 20131220
  Transmission Date: 20140711
  Serious: Yes (Other)
  Sender: FDA-Public Use
  Company Number: US-BAYER-2013-040711

PATIENT
  Age: 22 Year
  Sex: Female

DRUGS (4)
  1. YAZ [Suspect]
     Dosage: UNK
     Dates: start: 20090331, end: 200911
  2. YASMIN [Suspect]
     Dosage: UNK
     Dates: start: 20090331, end: 200911
  3. OCELLA [Suspect]
     Dosage: UNK
     Dates: start: 20090331, end: 200911
  4. MEDROXYPROGESTERON [Concomitant]
     Dosage: 10 MG, UNK
     Route: 048
     Dates: start: 20090423

REACTIONS (5)
  - Cholecystitis chronic [None]
  - Injury [None]
  - Pain [None]
  - Emotional distress [None]
  - Anxiety [None]
